FAERS Safety Report 6039554-0 (Version None)
Quarter: 2009Q1

REPORT INFORMATION
  Report Type: 
  Country: None (occurrence: None)
  Receive Date: 20090116
  Receipt Date: 20090113
  Transmission Date: 20090719
  Serious: Yes (Other)
  Sender: FDA-Public Use
  Company Number: CA-JNJFOC-20090102238

PATIENT
  Age: 26 Year
  Sex: Male

DRUGS (3)
  1. CONCERTA [Suspect]
     Indication: DRUG USE FOR UNKNOWN INDICATION
  2. WELLBUTRIN [Concomitant]
  3. HYDROCHLOROTHIAZIDE [Concomitant]

REACTIONS (1)
  - PROSTATITIS [None]
